FAERS Safety Report 9165394 (Version 1)
Quarter: 2013Q1

REPORT INFORMATION
  Report Type: Spontaneous
  Country: GB (occurrence: None)
  Receive Date: 20130301
  Receipt Date: 20130301
  Transmission Date: 20140127
  Serious: Yes (Congenital Anomaly)
  Sender: FDA-Public Use
  Company Number: APL-2013-00018

PATIENT
  Sex: Female
  Weight: 3 kg

DRUGS (1)
  1. PECFENT (FENTANYL) NASAL SPRAY, 100UG/1BOTTLE [Suspect]
     Indication: PRODUCT USED FOR UNKNOWN INDICATION
     Route: 064

REACTIONS (2)
  - Cleft palate [None]
  - Foetal exposure during pregnancy [None]
